FAERS Safety Report 8170652-1 (Version None)
Quarter: 2012Q1

REPORT INFORMATION
  Report Type: 
  Country: None (occurrence: None)
  Receive Date: 20120228
  Receipt Date: 20120216
  Transmission Date: 20120608
  Serious: Yes (Life-Threatening, Hospitalization, Disabling)
  Sender: FDA-Public Use
  Company Number: DK-ROCHE-675061

PATIENT
  Sex: Male
  Weight: 83 kg

DRUGS (5)
  1. CISPLATIN [Concomitant]
     Indication: GASTRIC CANCER
     Dosage: FORM: INFUSION.
     Dates: start: 20091106, end: 20091106
  2. XELODA [Suspect]
     Indication: GASTRIC CANCER
     Route: 048
     Dates: start: 20091106, end: 20091125
  3. XELODA [Suspect]
  4. LANSOPRAZOLE [Concomitant]
     Indication: GASTRIC PH DECREASED
  5. EPIRUBICIN [Concomitant]
     Indication: GASTRIC CANCER
     Dosage: FORM: INFUSION.
     Dates: start: 20091106, end: 20091106

REACTIONS (4)
  - ACUTE MYOCARDIAL INFARCTION [None]
  - CARDIAC ARREST [None]
  - MEMORY IMPAIRMENT [None]
  - BRAIN INJURY [None]
